FAERS Safety Report 25452450 (Version 1)
Quarter: 2025Q2

REPORT INFORMATION
  Report Type: Spontaneous
  Country: CN (occurrence: CN)
  Receive Date: 20250618
  Receipt Date: 20250618
  Transmission Date: 20250717
  Serious: Yes (Hospitalization)
  Sender: PFIZER
  Company Number: CN-PFIZER INC-PV202500071564

PATIENT
  Age: 39 Year
  Sex: Male

DRUGS (9)
  1. XYNTHA [Suspect]
     Active Substance: MOROCTOCOG ALFA
     Dosage: 2000 IU, 1X/DAY
     Route: 042
     Dates: start: 20240531
  2. XYNTHA [Suspect]
     Active Substance: MOROCTOCOG ALFA
     Dosage: 2000 IU, 1X/DAY
     Route: 042
     Dates: start: 20240705
  3. XYNTHA [Suspect]
     Active Substance: MOROCTOCOG ALFA
     Dosage: 2000 IU, ALTERNATE DAY
     Route: 042
     Dates: start: 20240904
  4. XYNTHA [Suspect]
     Active Substance: MOROCTOCOG ALFA
     Dosage: 2000 IU, ALTERNATE DAY
     Route: 040
     Dates: start: 20250324
  5. XYNTHA [Suspect]
     Active Substance: MOROCTOCOG ALFA
     Dosage: 2000 IU, 2X/DAY
     Route: 042
     Dates: start: 20250411
  6. XYNTHA [Suspect]
     Active Substance: MOROCTOCOG ALFA
     Dosage: 2000 IU, 2X/DAY
     Route: 042
     Dates: start: 20250419
  7. XYNTHA [Suspect]
     Active Substance: MOROCTOCOG ALFA
     Dosage: 2000 IU, 2X/DAY
     Route: 042
     Dates: start: 20250422
  8. XYNTHA [Suspect]
     Active Substance: MOROCTOCOG ALFA
     Dosage: 2000 IU, 2X/DAY
     Route: 042
     Dates: start: 20250531
  9. XYNTHA [Suspect]
     Active Substance: MOROCTOCOG ALFA
     Dosage: 2000 IU, 2X/DAY
     Route: 042
     Dates: start: 20250601

REACTIONS (3)
  - Haemophilic arthropathy [Unknown]
  - Soft tissue swelling [Unknown]
  - Pneumatosis [Unknown]

NARRATIVE: CASE EVENT DATE: 20250609
